FAERS Safety Report 9456412 (Version 2)
Quarter: 2013Q3

REPORT INFORMATION
  Report Type: Spontaneous
  Country: JP (occurrence: None)
  Receive Date: 20130809
  Receipt Date: 20130822
  Transmission Date: 20140515
  Serious: Yes (Hospitalization)
  Sender: FDA-Public Use
  Company Number: DSJ-2013-17178

PATIENT
  Age: 47 Year
  Sex: Male

DRUGS (2)
  1. OLMETEC [Suspect]
     Indication: HYPERTENSION
     Dosage: 5 MG, 2 IN 1 D
     Route: 048
     Dates: start: 201102, end: 20130706
  2. JUVELA N (TOCOPHERYL NICOTINATE) [Concomitant]

REACTIONS (2)
  - Gnathostomiasis [None]
  - Viral myositis [None]
